FAERS Safety Report 11359107 (Version 2)
Quarter: 2016Q3

REPORT INFORMATION
  Report Type: Report from Study
  Country: US (occurrence: US)
  Receive Date: 20150807
  Receipt Date: 20160919
  Transmission Date: 20161109
  Serious: Yes (Death, Hospitalization)
  Sender: FDA-Public Use
  Company Number: US-ACTELION-A-US2015-116276

PATIENT
  Age: 67 Year
  Sex: Female

DRUGS (1)
  1. OPSUMIT [Suspect]
     Active Substance: MACITENTAN
     Indication: PULMONARY ARTERIAL HYPERTENSION
     Dosage: 10 MG, QD
     Route: 048
     Dates: start: 20150313, end: 20150519

REACTIONS (13)
  - Fluid overload [Recovered/Resolved with Sequelae]
  - Dyspnoea [Not Recovered/Not Resolved]
  - Lung infection [Recovered/Resolved]
  - Renal impairment [Not Recovered/Not Resolved]
  - Chronic obstructive pulmonary disease [Recovered/Resolved with Sequelae]
  - Pulmonary hypertension [Recovered/Resolved with Sequelae]
  - Hypoxia [Not Recovered/Not Resolved]
  - Condition aggravated [Not Recovered/Not Resolved]
  - Right ventricular failure [Recovered/Resolved with Sequelae]
  - Oxygen supplementation [Not Recovered/Not Resolved]
  - Death [Fatal]
  - Respiratory failure [Not Recovered/Not Resolved]
  - Acute respiratory failure [Recovered/Resolved with Sequelae]

NARRATIVE: CASE EVENT DATE: 20150323
